FAERS Safety Report 7884431-3 (Version None)
Quarter: 2011Q4

REPORT INFORMATION
  Report Type: 
  Country: None (occurrence: None)
  Receive Date: 20111102
  Receipt Date: 20110628
  Transmission Date: 20120403
  Serious: No
  Sender: FDA-Public Use
  Company Number: US-ASTRAZENECA-2011SE39474

PATIENT
  Age: 56 Year
  Sex: Male

DRUGS (4)
  1. LEVOTHYROXINE SODIUM [Concomitant]
     Indication: HYPERTHYROIDISM
  2. ASPIRIN [Concomitant]
  3. CALCIUM+D [Concomitant]
  4. VANDETANIB [Suspect]
     Indication: THYROID CANCER
     Route: 048

REACTIONS (1)
  - SKIN LESION [None]
